FAERS Safety Report 6177438-8 (Version None)
Quarter: 2009Q2

REPORT INFORMATION
  Report Type: 
  Country: None (occurrence: None)
  Receive Date: 20090504
  Receipt Date: 20090422
  Transmission Date: 20091009
  Serious: Yes (Death, Hospitalization)
  Sender: FDA-Public Use
  Company Number: DE-BAYER-200829230GPV

PATIENT
  Age: 55 Year
  Sex: Male
  Weight: 73 kg

DRUGS (16)
  1. ALEMTUZUMAB [Suspect]
     Indication: CHRONIC LYMPHOCYTIC LEUKAEMIA RECURRENT
     Dosage: TOTAL DAILY DOSE: 3 MG
     Route: 058
     Dates: start: 20080715, end: 20080715
  2. ALEMTUZUMAB [Suspect]
     Dosage: TOTAL DAILY DOSE: 10 MG
     Route: 058
     Dates: start: 20080716, end: 20080716
  3. ALEMTUZUMAB [Suspect]
     Dosage: CYCLE 2
     Route: 058
     Dates: start: 20080801
  4. ALEMTUZUMAB [Suspect]
     Dosage: CYCLES, DAYS 1-3, CYCLE 1
     Route: 058
     Dates: start: 20080717
  5. FLUDARABINE PHOSPHATE [Suspect]
     Indication: CHRONIC LYMPHOCYTIC LEUKAEMIA RECURRENT
     Dosage: TOTAL DAILY DOSE: 50 MG
     Route: 042
     Dates: start: 20080717
  6. FLUDARABINE PHOSPHATE [Suspect]
     Dosage: TOTAL DAILY DOSE: 50 MG
     Route: 042
     Dates: start: 20080801
  7. FLUDARABINE PHOSPHATE [Suspect]
     Dosage: PREVIOUS TREATMENT WITH FC-REGIMEN PRIOR TO STUDY ENTRY
     Route: 065
     Dates: start: 20080101, end: 20080101
  8. CYCLOPHOSPHAMIDE [Suspect]
     Indication: CHRONIC LYMPHOCYTIC LEUKAEMIA RECURRENT
     Dosage: TOTAL DAILY DOSE: 400 MG
     Route: 042
     Dates: start: 20080717
  9. CYCLOPHOSPHAMIDE [Suspect]
     Dosage: PREVIOUS TREATMENT WITH FC-REGIMEN PRIOR TO STUDY ENTRY
     Route: 065
     Dates: start: 20080101, end: 20080101
  10. CYCLOPHOSPHAMIDE [Suspect]
     Dosage: TOTAL DAILY DOSE: 400 MG
     Route: 042
     Dates: start: 20080801
  11. VALACYCLOVIR HCL [Concomitant]
     Dosage: TOTAL DAILY DOSE: 1000 MG
     Route: 048
     Dates: start: 20080715, end: 20081010
  12. OMEPRAZOL [Concomitant]
     Dosage: TOTAL DAILY DOSE: 40 MG
     Route: 048
     Dates: start: 20080516
  13. PARACETAMOL [Concomitant]
     Dosage: 1 - 2 G
     Route: 048
     Dates: start: 20080901, end: 20080901
  14. CIPROFLOXACIN [Concomitant]
     Dosage: TOTAL DAILY DOSE: 500 MG
     Route: 048
     Dates: start: 20080813, end: 20081005
  15. BENDAMUSTIN [Concomitant]
     Indication: CHRONIC LYMPHOCYTIC LEUKAEMIA
     Dosage: RESCUE THERAPY WITH BR-REGIMEN, 1 CYCLE
     Route: 065
     Dates: start: 20081113, end: 20081113
  16. RITUXIMAB [Concomitant]
     Indication: CHRONIC LYMPHOCYTIC LEUKAEMIA
     Dosage: RESCUE THERAPY WITH BR-REGIMEN, 1 CYCLE
     Route: 065
     Dates: start: 20081113, end: 20081113

REACTIONS (3)
  - PNEUMOCYSTIS JIROVECI PNEUMONIA [None]
  - PULMONARY SEPSIS [None]
  - PYREXIA [None]
